FAERS Safety Report 8993230 (Version 2)
Quarter: 2013Q2

REPORT INFORMATION
  Report Type: Spontaneous
  Country: DK (occurrence: DK)
  Receive Date: 20130102
  Receipt Date: 20130513
  Transmission Date: 20140414
  Serious: Yes (Other)
  Sender: FDA-Public Use
  Company Number: DK-TEVA-377526ISR

PATIENT
  Sex: Female

DRUGS (7)
  1. METHOTREXATE [Suspect]
     Indication: RHEUMATOID ARTHRITIS
     Dates: start: 20020627, end: 20061023
  2. HUMIRA [Suspect]
     Indication: RHEUMATOID ARTHRITIS
     Dates: start: 20050518, end: 20100318
  3. ENBREL [Suspect]
     Indication: RHEUMATOID ARTHRITIS
     Dates: start: 20120718, end: 20121220
  4. REMICADE [Suspect]
     Indication: RHEUMATOID ARTHRITIS
     Dates: start: 20020627, end: 20050316
  5. METOPROLOLSUCCINAT [Concomitant]
  6. HJERTEMAGNYL [Concomitant]
  7. CORODIL [Concomitant]

REACTIONS (3)
  - Pancytopenia [Recovered/Resolved]
  - Weight decreased [Not Recovered/Not Resolved]
  - Splenomegaly [Not Recovered/Not Resolved]
